FAERS Safety Report 9267047 (Version 6)
Quarter: 2014Q1

REPORT INFORMATION
  Report Type: Spontaneous
  Country: US (occurrence: US)
  Receive Date: 20130502
  Receipt Date: 20140213
  Transmission Date: 20141002
  Serious: No
  Sender: FDA-Public Use
  Company Number: US-PFIZER INC-2013133467

PATIENT
  Age: 63 Year
  Sex: Male
  Weight: 78.01 kg

DRUGS (7)
  1. LYRICA [Suspect]
     Indication: FIBROMYALGIA
     Dosage: 75 MG TWO TIMES A DAY
     Route: 048
     Dates: start: 20130316, end: 201303
  2. LYRICA [Suspect]
     Indication: NEUROPATHY PERIPHERAL
     Dosage: 75MG TWO TIMES A DAY
     Route: 048
     Dates: start: 20130603
  3. LYRICA [Suspect]
     Indication: DIABETIC NEUROPATHY
  4. GABAPENTIN [Suspect]
     Indication: DIABETIC NEUROPATHY
     Dosage: 300 MG, 3X/DAY
     Route: 048
     Dates: end: 2013
  5. SIMVASTATIN [Concomitant]
     Indication: BLOOD CHOLESTEROL INCREASED
     Dosage: 40 MG, DAILY
     Dates: start: 2011
  6. LANTUS [Concomitant]
     Dosage: 20 IU DAILY AT NIGHT
  7. HYDROCHLOROTHIAZIDE [Concomitant]
     Indication: HYPERTENSION
     Dosage: UNK

REACTIONS (7)
  - Off label use [Unknown]
  - Hypersensitivity [Unknown]
  - Neuralgia [Unknown]
  - Burning sensation [Unknown]
  - Drug ineffective for unapproved indication [Unknown]
  - Pain [Unknown]
  - Hypoaesthesia [Unknown]
